FAERS Safety Report 7159519-5 (Version None)
Quarter: 2010Q4

REPORT INFORMATION
  Report Type: 
  Country: None (occurrence: None)
  Receive Date: 20101214
  Receipt Date: 20100916
  Transmission Date: 20110411
  Serious: No
  Sender: FDA-Public Use
  Company Number: US-ASTRAZENECA-2010SE43569

PATIENT
  Age: 54 Year
  Sex: Female
  Weight: 55.8 kg

DRUGS (1)
  1. CRESTOR [Suspect]
     Route: 048
     Dates: start: 20100826

REACTIONS (3)
  - DYSPEPSIA [None]
  - HEADACHE [None]
  - MYALGIA [None]
